FAERS Safety Report 10062417 (Version 3)
Quarter: 2014Q2

REPORT INFORMATION
  Report Type: Spontaneous
  Country: US (occurrence: US)
  Receive Date: 20140407
  Receipt Date: 20140502
  Transmission Date: 20141212
  Serious: No
  Sender: FDA-Public Use
  Company Number: US-PFIZER INC-2014094672

PATIENT
  Age: 75 Year
  Sex: Female
  Weight: 55.33 kg

DRUGS (4)
  1. SUTENT [Suspect]
     Indication: NEOPLASM MALIGNANT
     Dosage: 37.5 MG, DAILY
     Dates: start: 20140304
  2. LOMOTIL [Concomitant]
     Dosage: UNK, AS NEEDED
  3. B12 [Concomitant]
     Dosage: UNK, MONTHLY
  4. PEPCID [Concomitant]
     Dosage: UNK

REACTIONS (2)
  - Disease progression [Unknown]
  - Neoplasm malignant [Unknown]
